FAERS Safety Report 25050333 (Version 1)
Quarter: 2025Q1

REPORT INFORMATION
  Report Type: Spontaneous
  Country: US (occurrence: None)
  Receive Date: 20250306
  Receipt Date: 20250306
  Transmission Date: 20250409
  Serious: No
  Sender: FDA-CTU
  Company Number: None

PATIENT
  Age: 17 Day
  Sex: Male
  Weight: 3.61 kg

DRUGS (1)
  1. NIRSEVIMAB [Suspect]
     Active Substance: NIRSEVIMAB
     Route: 030

REACTIONS (1)
  - Maternal drugs affecting foetus [None]

NARRATIVE: CASE EVENT DATE: 20250218
